FAERS Safety Report 6583477-5 (Version None)
Quarter: 2010Q1

REPORT INFORMATION
  Report Type: 
  Country: None (occurrence: None)
  Receive Date: 20100216
  Receipt Date: 20100203
  Transmission Date: 20100710
  Serious: Yes (Death)
  Sender: FDA-Public Use
  Company Number: IE-MEDIMMUNE-MEDI-0010057

PATIENT
  Sex: Male

DRUGS (1)
  1. SYNAGIS [Suspect]
     Route: 030
     Dates: start: 20091002, end: 20091002

REACTIONS (1)
  - APNOEA [None]
